FAERS Safety Report 8315412-3 (Version None)
Quarter: 2012Q2

REPORT INFORMATION
  Report Type: 
  Country: None (occurrence: None)
  Receive Date: 20120426
  Receipt Date: 20120419
  Transmission Date: 20120825
  Serious: Yes (Disabling, Other)
  Sender: FDA-Public Use
  Company Number: US-PERRIGO-12US002128

PATIENT
  Sex: Male
  Weight: 99.773 kg

DRUGS (9)
  1. VENTOLIN HFA [Concomitant]
     Indication: PRODUCT USED FOR UNKNOWN INDICATION
     Dosage: TWO PUFFS, EVERY 4 HOURS, PRN
     Route: 055
  2. ASPIRIN [Concomitant]
     Indication: PRODUCT USED FOR UNKNOWN INDICATION
     Dosage: 81 MG, QD
     Route: 048
  3. LIDEX [Concomitant]
     Indication: PRODUCT USED FOR UNKNOWN INDICATION
     Dosage: ONE APPLICATION TO AFFECTED AREA, UNK
     Route: 061
  4. LISINOPRIL [Concomitant]
     Indication: HYPERTENSION
     Dosage: 10 MG, QD
     Route: 048
     Dates: start: 20100101
  5. SIMVASTATIN [Concomitant]
     Indication: BLOOD CHOLESTEROL INCREASED
     Dosage: 40 MG, QD EACH EVENING
     Route: 048
     Dates: start: 20100101
  6. FLOVENT HFA [Concomitant]
     Indication: PRODUCT USED FOR UNKNOWN INDICATION
     Dosage: ONE PUFF, BID
     Route: 055
  7. TOLNAFTATE 1% 205 [Suspect]
     Indication: TINEA PEDIS
     Dosage: ONE SPRAY ON TOP OF EACH FOOT, SINGLE
     Route: 061
     Dates: start: 20120307, end: 20120307
  8. METOPROLOL TARTRATE [Concomitant]
     Indication: HYPERTENSION
     Dosage: 25 MG, QD
     Route: 048
     Dates: start: 20100101
  9. NAPROXEN [Concomitant]
     Indication: PRODUCT USED FOR UNKNOWN INDICATION
     Dosage: 500 MG, BID, PRN
     Route: 048

REACTIONS (8)
  - BURNING SENSATION [None]
  - ACTIVITIES OF DAILY LIVING IMPAIRED [None]
  - PAIN [None]
  - ERYTHEMA [None]
  - SKIN EXFOLIATION [None]
  - OEDEMA PERIPHERAL [None]
  - BLISTER [None]
  - DERMATITIS [None]
